FAERS Safety Report 7077268-9 (Version None)
Quarter: 2010Q4

REPORT INFORMATION
  Report Type: 
  Country: None (occurrence: None)
  Receive Date: 20101101
  Receipt Date: 20101021
  Transmission Date: 20110411
  Serious: Yes (Death, Other)
  Sender: FDA-Public Use
  Company Number: GB-JNJFOC-20090506494

PATIENT
  Sex: Male
  Weight: 67 kg

DRUGS (5)
  1. REMICADE [Suspect]
     Indication: RHEUMATOID ARTHRITIS
     Route: 042
  2. METHOTREXATE [Concomitant]
  3. CO-CODAMOL [Concomitant]
  4. VOLTAREN [Concomitant]
  5. ETANERCEPT [Concomitant]

REACTIONS (2)
  - BRONCHOPNEUMONIA [None]
  - LUNG NEOPLASM MALIGNANT [None]
